FAERS Safety Report 23687649 (Version 2)
Quarter: 2024Q2

REPORT INFORMATION
  Report Type: Spontaneous
  Country: US (occurrence: US)
  Receive Date: 20240329
  Receipt Date: 20240408
  Transmission Date: 20240715
  Serious: Yes (Other)
  Sender: FDA-Public Use
  Company Number: US-GUERBET / LLC-US-20240052

PATIENT
  Age: 63 Year
  Sex: Male
  Weight: 92.9 kg

DRUGS (1)
  1. DOTAREM [Suspect]
     Active Substance: GADOTERATE MEGLUMINE
     Indication: Magnetic resonance imaging head
     Route: 042
     Dates: start: 20240321, end: 20240321

REACTIONS (4)
  - Urticaria [Unknown]
  - Nausea [Unknown]
  - Blood pressure increased [Unknown]
  - Flushing [Unknown]

NARRATIVE: CASE EVENT DATE: 20240321
